FAERS Safety Report 14729534 (Version 1)
Quarter: 2018Q2

REPORT INFORMATION
  Report Type: Spontaneous
  Country: US (occurrence: US)
  Receive Date: 20180402
  Receipt Date: 20180402
  Transmission Date: 20180711
  Serious: No
  Sender: FDA-Public Use
  Company Number: None

PATIENT
  Sex: Female

DRUGS (1)
  1. IBRANCE [Suspect]
     Active Substance: PALBOCICLIB
     Indication: BREAST CANCER FEMALE
     Dosage: FREAUENCV?DAILY FOR 3 WEEKS ONTHEN 1  WEEK OFF                                ?
     Route: 048
     Dates: start: 20180313, end: 20180402

REACTIONS (2)
  - White blood cell count decreased [None]
  - Therapy change [None]
